FAERS Safety Report 19844601 (Version 2)
Quarter: 2021Q3

REPORT INFORMATION
  Report Type: Report from Study
  Country: None (occurrence: FR)
  Receive Date: 20210917
  Receipt Date: 20210923
  Transmission Date: 20211014
  Serious: Yes (Other)
  Sender: FDA-Public Use
  Company Number: FR-ABBVIE-19K-056-2843559-00

PATIENT
  Age: 62 Year
  Sex: Female
  Weight: 45 kg

DRUGS (24)
  1. VENCLYXTO [Suspect]
     Active Substance: VENETOCLAX
     Indication: CHRONIC LYMPHOCYTIC LEUKAEMIA
     Route: 048
     Dates: start: 20190606, end: 20190612
  2. VENCLYXTO [Suspect]
     Active Substance: VENETOCLAX
     Route: 048
     Dates: start: 20190727, end: 20190807
  3. VENCLYXTO [Suspect]
     Active Substance: VENETOCLAX
     Route: 048
     Dates: start: 20190808
  4. RITUXIMAB. [Concomitant]
     Active Substance: RITUXIMAB
     Indication: CHRONIC LYMPHOCYTIC LEUKAEMIA
     Dates: start: 20190806, end: 20191231
  5. RITUXIMAB. [Concomitant]
     Active Substance: RITUXIMAB
     Dates: start: 2014, end: 201703
  6. SOLU?MEDROL [Concomitant]
     Active Substance: METHYLPREDNISOLONE SODIUM SUCCINATE
     Indication: TUMOUR LYSIS SYNDROME
     Dates: start: 20190606, end: 20190607
  7. VENCLYXTO [Suspect]
     Active Substance: VENETOCLAX
     Route: 048
     Dates: start: 20190620, end: 20190626
  8. VENCLYXTO [Suspect]
     Active Substance: VENETOCLAX
     Route: 048
     Dates: start: 20190709, end: 20190715
  9. VENCLYXTO [Suspect]
     Active Substance: VENETOCLAX
     Route: 048
     Dates: start: 20190716, end: 20190726
  10. VENCLYXTO [Suspect]
     Active Substance: VENETOCLAX
     Route: 048
     Dates: start: 20210701, end: 20210719
  11. PENTAMIDINE [Concomitant]
     Active Substance: PENTAMIDINE
     Indication: ANTIBIOTIC PROPHYLAXIS
     Dates: start: 20191001
  12. VENCLYXTO [Suspect]
     Active Substance: VENETOCLAX
     Route: 048
     Dates: start: 201906
  13. VENCLYXTO [Suspect]
     Active Substance: VENETOCLAX
     Route: 048
     Dates: start: 20210810
  14. VALACICLOVIR [Concomitant]
     Active Substance: VALACYCLOVIR HYDROCHLORIDE
     Indication: ANTIVIRAL PROPHYLAXIS
     Dates: start: 20190711
  15. RASBURICASE [Concomitant]
     Active Substance: RASBURICASE
     Indication: PROPHYLAXIS
     Dates: start: 20190724, end: 20190724
  16. DELURSAN [Concomitant]
     Active Substance: URSODIOL
     Indication: CHOLELITHIASIS
     Dates: start: 20190903
  17. ASTRAZENECA COVID?19 VACCINE [Concomitant]
     Active Substance: AZD-1222
     Indication: COVID-19 IMMUNISATION
     Dates: start: 2021, end: 2021
  18. ZECLAR [Concomitant]
     Active Substance: CLARITHROMYCIN
     Indication: DEVICE RELATED INFECTION
     Dates: start: 20190606, end: 20190619
  19. NIVESTIM [Concomitant]
     Active Substance: FILGRASTIM
     Indication: COLONY STIMULATING FACTOR THERAPY
     Dates: start: 20190726
  20. VENCLYXTO [Suspect]
     Active Substance: VENETOCLAX
     Route: 048
     Dates: start: 20190613, end: 20190619
  21. VENCLYXTO [Suspect]
     Active Substance: VENETOCLAX
     Route: 048
     Dates: start: 20190702, end: 20190708
  22. LEDERFOLIN [Concomitant]
     Active Substance: LEUCOVORIN CALCIUM
     Indication: VITAMIN SUPPLEMENTATION
     Dates: start: 20190606
  23. PREVENAR [Concomitant]
     Active Substance: PNEUMOCOCCAL 7-VALENT CONJUGATE VACCINE (DIPHTHERIA CRM197 PROTEIN)
     Indication: IMMUNISATION
     Dates: start: 20210521, end: 20210521
  24. BACTRIM [Concomitant]
     Active Substance: SULFAMETHOXAZOLE\TRIMETHOPRIM
     Indication: INFECTION PROPHYLAXIS
     Dates: start: 20190711, end: 20191011

REACTIONS (7)
  - Anaemia [Recovered/Resolved]
  - Neutropenia [Recovering/Resolving]
  - Neutropenia [Recovered/Resolved]
  - Pneumonia [Unknown]
  - Device related infection [Recovered/Resolved]
  - Weight increased [Unknown]
  - Neutropenia [Not Recovered/Not Resolved]

NARRATIVE: CASE EVENT DATE: 20190607
